FAERS Safety Report 7030433-9 (Version None)
Quarter: 2010Q4

REPORT INFORMATION
  Report Type: 
  Country: None (occurrence: None)
  Receive Date: 20101001
  Receipt Date: 20100916
  Transmission Date: 20110411
  Serious: Yes (Other)
  Sender: FDA-Public Use
  Company Number: 2010SP049920

PATIENT
  Age: 63 Year
  Sex: Male

DRUGS (2)
  1. PEG-INTRON [Suspect]
     Indication: HEPATITIS C
     Dosage: SC
     Route: 058
     Dates: start: 20100401
  2. REBETOL [Suspect]
     Indication: HEPATITIS C
     Dosage: 800 MG QD PO
     Route: 048
     Dates: start: 20100401

REACTIONS (4)
  - ABDOMINAL DISCOMFORT [None]
  - ANGER [None]
  - DEMENTIA [None]
  - GASTROINTESTINAL DISORDER [None]
